FAERS Safety Report 15960542 (Version 1)
Quarter: 2019Q1

REPORT INFORMATION
  Report Type: Spontaneous
  Country: US (occurrence: US)
  Receive Date: 20190213
  Receipt Date: 20190213
  Transmission Date: 20190417
  Serious: Yes (Other)
  Sender: FDA-Public Use
  Company Number: None

PATIENT
  Age: 18 Year
  Sex: Female
  Weight: 58.5 kg

DRUGS (1)
  1. CEFTRIAXONE SODIUM. [Suspect]
     Active Substance: CEFTRIAXONE SODIUM
     Indication: INFECTION
     Dosage: ?          QUANTITY:1000 INJECTION(S);?
     Route: 030
     Dates: start: 20190125, end: 20190125

REACTIONS (1)
  - Seizure [None]

NARRATIVE: CASE EVENT DATE: 20190125
